FAERS Safety Report 8397589-7 (Version None)
Quarter: 2012Q2

REPORT INFORMATION
  Report Type: 
  Country: None (occurrence: None)
  Receive Date: 20120529
  Receipt Date: 20120529
  Transmission Date: 20120825
  Serious: Yes (Other)
  Sender: FDA-Public Use
  Company Number: None

PATIENT
  Age: 70 Year
  Sex: Female
  Weight: 70.3075 kg

DRUGS (1)
  1. AMLODIPINE BESYLATE [Suspect]
     Indication: HYPERTENSION
     Dosage: ONE 2.5 MG TABLET DAILY AM PO
     Route: 048
     Dates: start: 20120522, end: 20120527

REACTIONS (5)
  - PALPITATIONS [None]
  - BACK PAIN [None]
  - ARTHRALGIA [None]
  - MUSCULOSKELETAL PAIN [None]
  - PAIN IN EXTREMITY [None]
